FAERS Safety Report 5084194-3 (Version None)
Quarter: 2006Q3

REPORT INFORMATION
  Report Type: 
  Country: None (occurrence: None)
  Receive Date: 20060821
  Receipt Date: 20050721
  Transmission Date: 20061208
  Serious: No
  Sender: FDA-Public Use
  Company Number: US-BRISTOL-MYERS SQUIBB COMPANY-13046776

PATIENT
  Age: 63 Year
  Sex: Male
  Weight: 73 kg

DRUGS (3)
  1. TEQUIN [Suspect]
     Indication: LUNG INFECTION
     Dates: start: 20050720
  2. BENADRYL [Concomitant]
  3. GUAIFENESIN [Concomitant]

REACTIONS (1)
  - MUSCLE TWITCHING [None]
